FAERS Safety Report 5589914-7 (Version None)
Quarter: 2007Q4

REPORT INFORMATION
  Report Type: 
  Country: None (occurrence: None)
  Receive Date: 20071212
  Receipt Date: 20070718
  Transmission Date: 20080405
  Serious: Yes (Death, Other)
  Sender: FDA-Public Use
  Company Number: USA-2007-0028322

PATIENT
  Age: 20 Year
  Sex: Male

DRUGS (1)
  1. OXYCONTIN [Suspect]
     Indication: SPORTS INJURY
     Dosage: ORAL
     Route: 048
     Dates: start: 20010101, end: 20021101

REACTIONS (3)
  - DRUG ABUSER [None]
  - INTENTIONAL DRUG MISUSE [None]
  - OVERDOSE [None]
